FAERS Safety Report 21567815 (Version 1)
Quarter: 2022Q4

REPORT INFORMATION
  Report Type: Spontaneous
  Country: JP (occurrence: None)
  Receive Date: 20221108
  Receipt Date: 20221108
  Transmission Date: 20230113
  Serious: Yes (Other)
  Sender: FDA-Public Use
  Company Number: 2022A365299

PATIENT
  Sex: Female

DRUGS (1)
  1. SAPHNELO [Suspect]
     Active Substance: ANIFROLUMAB-FNIA
     Dosage: DOSE UNKNOWN
     Route: 041

REACTIONS (2)
  - Humerus fracture [Unknown]
  - Fall [Unknown]

NARRATIVE: CASE EVENT DATE: 20221001
